FAERS Safety Report 7722418-1 (Version None)
Quarter: 2011Q3

REPORT INFORMATION
  Report Type: 
  Country: None (occurrence: None)
  Receive Date: 20110831
  Receipt Date: 20110823
  Transmission Date: 20111222
  Serious: Yes (Other)
  Sender: FDA-Public Use
  Company Number: SI-CUBIST-2011S1000488

PATIENT
  Age: 52 Year
  Sex: Female

DRUGS (2)
  1. CUBICIN [Suspect]
     Indication: SKIN ULCER
     Route: 042
  2. CUBICIN [Suspect]
     Indication: STAPHYLOCOCCAL SEPSIS
     Route: 042

REACTIONS (6)
  - BODY TEMPERATURE INCREASED [None]
  - LACTIC ACIDOSIS [None]
  - OLIGURIA [None]
  - PCO2 DECREASED [None]
  - COAGULOPATHY [None]
  - WHITE BLOOD CELL COUNT INCREASED [None]
